FAERS Safety Report 26158285 (Version 1)
Quarter: 2025Q4

REPORT INFORMATION
  Report Type: Report from Study
  Country: EU (occurrence: EU)
  Receive Date: 20251215
  Receipt Date: 20251215
  Transmission Date: 20260118
  Serious: Yes (Hospitalization)
  Sender: MYLAN
  Company Number: EU-SANDOZ-SDZ2025DE074895

PATIENT
  Sex: Female

DRUGS (18)
  1. METHOTREXATE [Suspect]
     Active Substance: METHOTREXATE
     Indication: Product used for unknown indication
     Dosage: UNK 5.0
  2. METHOTREXATE [Suspect]
     Active Substance: METHOTREXATE
     Dosage: UNK  5.0
  3. METHOTREXATE [Suspect]
     Active Substance: METHOTREXATE
     Dosage: UNK 5.0
  4. METHOTREXATE [Suspect]
     Active Substance: METHOTREXATE
     Dosage: UNK 2.5
  5. METHOTREXATE [Suspect]
     Active Substance: METHOTREXATE
     Dosage: UNK 2.5
  6. METHOTREXATE [Suspect]
     Active Substance: METHOTREXATE
     Dosage: UNK 2.5
  7. METHOTREXATE [Suspect]
     Active Substance: METHOTREXATE
     Dosage: UNK 2.5
  8. METHOTREXATE [Suspect]
     Active Substance: METHOTREXATE
     Dosage: UNK 2.5
  9. ERELZI [Suspect]
     Active Substance: ETANERCEPT-SZZS
     Indication: Rheumatoid arthritis
     Dosage: 50 MILLIGRAM
  10. ERELZI [Suspect]
     Active Substance: ETANERCEPT-SZZS
     Dosage: 50 MILLIGRAM
  11. ERELZI [Suspect]
     Active Substance: ETANERCEPT-SZZS
     Dosage: 50 MILLIGRAM
  12. ERELZI [Suspect]
     Active Substance: ETANERCEPT-SZZS
     Dosage: 50 MILLIGRAM
  13. ERELZI [Suspect]
     Active Substance: ETANERCEPT-SZZS
     Dosage: 50 MILLIGRAM
  14. ERELZI [Suspect]
     Active Substance: ETANERCEPT-SZZS
     Dosage: 50 MILLIGRAM
  15. ERELZI [Suspect]
     Active Substance: ETANERCEPT-SZZS
     Dosage: 50 MILLIGRAM
  16. ERELZI [Suspect]
     Active Substance: ETANERCEPT-SZZS
     Dosage: 50 MILLIGRAM
  17. ERELZI [Suspect]
     Active Substance: ETANERCEPT-SZZS
     Dosage: 50 MILLIGRAM
  18. ERELZI [Suspect]
     Active Substance: ETANERCEPT-SZZS
     Dosage: 50 MILLIGRAM, QW (EVERY 7 DAYS)

REACTIONS (3)
  - Chest pain [Recovered/Resolved]
  - Atrial flutter [Recovered/Resolved]
  - Alopecia [Recovered/Resolved]

NARRATIVE: CASE EVENT DATE: 20240401
